FAERS Safety Report 22254652 (Version 1)
Quarter: 2023Q2

REPORT INFORMATION
  Report Type: Report from Study
  Country: TH (occurrence: TH)
  Receive Date: 20230426
  Receipt Date: 20230426
  Transmission Date: 20230722
  Serious: Yes (Death)
  Sender: FDA-Public Use
  Company Number: TH-BAYER-2023A051319

PATIENT
  Sex: Male

DRUGS (1)
  1. NEXAVAR [Suspect]
     Active Substance: SORAFENIB
     Indication: Thyroid cancer
     Dosage: 600 MG DAILY

REACTIONS (2)
  - Myocardial ischaemia [Fatal]
  - Off label use [None]

NARRATIVE: CASE EVENT DATE: 20230413
